FAERS Safety Report 6907720-5 (Version None)
Quarter: 2010Q3

REPORT INFORMATION
  Report Type: 
  Country: None (occurrence: None)
  Receive Date: 20100715
  Receipt Date: 20090817
  Transmission Date: 20110219
  Serious: Yes (Hospitalization)
  Sender: FDA-Public Use
  Company Number: US-000273

PATIENT
  Sex: Male

DRUGS (5)
  1. SOMATROPIN RDNA [Suspect]
     Indication: DWARFISM
     Dosage: (48 IU QD SUBCUTANEOUS), (48 IU)
     Route: 058
     Dates: start: 20090501, end: 20090504
  2. SOMATROPIN RDNA [Suspect]
     Indication: DWARFISM
     Dosage: (48 IU QD SUBCUTANEOUS), (48 IU)
     Route: 058
     Dates: start: 20090805
  3. CONCERTA [Concomitant]
  4. ADDERALL 10 [Concomitant]
  5. INSULIN [Concomitant]

REACTIONS (4)
  - DECREASED APPETITE [None]
  - DIZZINESS [None]
  - NAUSEA [None]
  - VOMITING [None]
